FAERS Safety Report 13420241 (Version 2)
Quarter: 2017Q2

REPORT INFORMATION
  Report Type: Spontaneous
  Country: US (occurrence: US)
  Receive Date: 20170407
  Receipt Date: 20170626
  Transmission Date: 20170830
  Serious: No
  Sender: FDA-Public Use
  Company Number: US-PFIZER INC-2017142878

PATIENT
  Age: 79 Year
  Sex: Female

DRUGS (1)
  1. BENEFIX [Suspect]
     Active Substance: COAGULATION FACTOR IX RECOMBINANT HUMAN\ISOPROPYL ALCOHOL
     Indication: CATHETERISATION CARDIAC
     Dosage: 1000 MG, 1X/DAY
     Dates: start: 20170405

REACTIONS (2)
  - Cardiac stress test abnormal [Unknown]
  - Chest pain [Unknown]
